FAERS Safety Report 9487110 (Version 3)
Quarter: 2014Q1

REPORT INFORMATION
  Report Type: Spontaneous
  Country: US (occurrence: US)
  Receive Date: 20130829
  Receipt Date: 20140321
  Transmission Date: 20141002
  Serious: Yes (Hospitalization, Other)
  Sender: FDA-Public Use
  Company Number: US-009507513-1112USA02105

PATIENT
  Sex: Female
  Weight: 66.21 kg

DRUGS (7)
  1. FOSAMAX [Suspect]
     Indication: OSTEOPOROSIS
     Dosage: 10 MG, QD
     Route: 048
  2. FOSAMAX [Suspect]
     Dosage: 70 MG, QW
     Route: 048
  3. ALENDRONATE SODIUM [Suspect]
     Indication: OSTEOPOROSIS
     Dosage: 10 MG, UNK
     Dates: start: 1996, end: 2002
  4. ALENDRONATE SODIUM [Suspect]
     Dosage: 70 MG, UNK
     Dates: start: 2002, end: 2010
  5. VITAMIN D (UNSPECIFIED) [Concomitant]
     Dosage: 2200 MG, UNK
     Dates: start: 2006
  6. PRILOSEC [Concomitant]
     Dosage: UNK
     Dates: start: 2006
  7. SYNTHROID [Concomitant]
     Indication: HYPOTHYROIDISM
     Dosage: UNK
     Dates: start: 1995

REACTIONS (44)
  - Femur fracture [Unknown]
  - Breast reconstruction [Unknown]
  - Mastectomy [Unknown]
  - Intramedullary rod insertion [Unknown]
  - Intramedullary rod insertion [Unknown]
  - Closed fracture manipulation [Unknown]
  - Femur fracture [Unknown]
  - Foot fracture [Unknown]
  - Vitamin D deficiency [Unknown]
  - Sinusitis [Unknown]
  - Gastrointestinal disorder [Unknown]
  - Road traffic accident [Unknown]
  - Helicobacter infection [Unknown]
  - Nephrolithiasis [Unknown]
  - Ureteral disorder [Unknown]
  - Intervertebral disc degeneration [Unknown]
  - Dyspnoea [Unknown]
  - Fatigue [Unknown]
  - Spinal osteoarthritis [Unknown]
  - Diverticulum [Unknown]
  - Intervertebral disc protrusion [Unknown]
  - Spinal column stenosis [Unknown]
  - Chondromalacia [Unknown]
  - Fracture nonunion [Unknown]
  - Type V hyperlipidaemia [Unknown]
  - Large intestine polyp [Unknown]
  - Anxiety [Unknown]
  - Depression [Unknown]
  - Disturbance in attention [Unknown]
  - Impaired healing [Unknown]
  - Osteopenia [Unknown]
  - Urinary tract infection [Unknown]
  - Osteoarthritis [Unknown]
  - Contusion [Unknown]
  - Rib fracture [Unknown]
  - Constipation [Unknown]
  - Oedema peripheral [Unknown]
  - Nausea [Unknown]
  - Gastrooesophageal reflux disease [Unknown]
  - Abdominal pain [Unknown]
  - Myalgia [Unknown]
  - Arthralgia [Not Recovered/Not Resolved]
  - Back pain [Not Recovered/Not Resolved]
  - Alopecia [Unknown]
